FAERS Safety Report 18416734 (Version 1)
Quarter: 2020Q4

REPORT INFORMATION
  Report Type: Report from Study
  Country: FR (occurrence: FR)
  Receive Date: 20201022
  Receipt Date: 20201022
  Transmission Date: 20210114
  Serious: Yes (Hospitalization)
  Sender: FDA-Public Use
  Company Number: FR-MYLANLABS-2020M1088752

PATIENT
  Age: 66 Year
  Sex: Male
  Weight: 76 kg

DRUGS (16)
  1. CABAZITAXEL [Suspect]
     Active Substance: CABAZITAXEL
     Dosage: 16 MG/M2, QOW
     Route: 042
     Dates: start: 20200914, end: 20200914
  2. NOVORAPID [Concomitant]
     Active Substance: INSULIN ASPART
     Dosage: 10 UI
     Route: 058
  3. CREON [Concomitant]
     Active Substance: PANCRELIPASE AMYLASE\PANCRELIPASE LIPASE\PANCRELIPASE PROTEASE
     Dosage: 2 DF, QD
     Route: 048
  4. LANTUS [Concomitant]
     Active Substance: INSULIN GLARGINE
     Dosage: 56 UI
     Route: 058
  5. LENOGRASTIM [Suspect]
     Active Substance: LENOGRASTIM
     Indication: PROSTATE CANCER METASTATIC
     Dosage: 1 DF WILL BE INJECTED FROM DAY 3 TO DAY 7 (5 DAYS) AFTER EVERY ADMINISTRATION OF CABAZITAXEL
     Route: 058
     Dates: start: 20200916, end: 20200920
  6. RISPERDAL [Concomitant]
     Active Substance: RISPERIDONE
     Dosage: 1 DF, QD
     Route: 048
  7. DIFFU K [Concomitant]
     Active Substance: POTASSIUM CHLORIDE
     Dosage: 1 DF, QD
     Route: 048
  8. COTAREG [Concomitant]
     Active Substance: HYDROCHLOROTHIAZIDE\VALSARTAN
     Dosage: 1 DF, QD
     Route: 048
  9. CACIT D3 [Concomitant]
     Active Substance: CALCIUM\CHOLECALCIFEROL
     Indication: PROSTATE CANCER
     Dosage: 1 DF, QD
     Route: 048
  10. PREVISCAN                          /00261401/ [Concomitant]
     Active Substance: PENTOXIFYLLINE
     Dosage: 0.5 DF, QD
     Route: 048
  11. ZOPICLONE [Concomitant]
     Active Substance: ZOPICLONE
     Dosage: 1 DF, QD
     Route: 048
  12. METFORMIN [Concomitant]
     Active Substance: METFORMIN HYDROCHLORIDE
     Dosage: 1 G, TID
     Route: 048
  13. LERCAN [Concomitant]
     Active Substance: LERCANIDIPINE
     Dosage: 1 DF, QD
     Route: 048
  14. PREDNISOLONE. [Suspect]
     Active Substance: PREDNISOLONE
     Indication: PROSTATE CANCER METASTATIC
     Dosage: 10 MG, QD
     Route: 048
     Dates: start: 20200831
  15. CABAZITAXEL [Suspect]
     Active Substance: CABAZITAXEL
     Indication: PROSTATE CANCER METASTATIC
     Dosage: 16 MG/M2, QOW
     Route: 042
  16. IMODIUM [Concomitant]
     Active Substance: LOPERAMIDE HYDROCHLORIDE
     Dosage: 1 DF, QD
     Route: 048

REACTIONS (1)
  - General physical health deterioration [Not Recovered/Not Resolved]

NARRATIVE: CASE EVENT DATE: 20200928
